FAERS Safety Report 21309009 (Version 1)
Quarter: 2022Q3

REPORT INFORMATION
  Report Type: Report from Study
  Country: US (occurrence: None)
  Receive Date: 20220908
  Receipt Date: 20220908
  Transmission Date: 20221026
  Serious: Yes (Other)
  Sender: FDA-Public Use
  Company Number: 2022A306089

PATIENT
  Sex: Male
  Weight: 106 kg

DRUGS (2)
  1. TAGRISSO [Suspect]
     Active Substance: OSIMERTINIB
     Indication: Lung neoplasm malignant
     Route: 048
     Dates: start: 20200912
  2. BLACK CUMIN SEED OIL [Concomitant]
     Route: 065

REACTIONS (1)
  - Toxicity to various agents [Unknown]
